FAERS Safety Report 6978758-7 (Version None)
Quarter: 2010Q3

REPORT INFORMATION
  Report Type: 
  Country: None (occurrence: None)
  Receive Date: 20100913
  Receipt Date: 20100903
  Transmission Date: 20110219
  Serious: Yes (Hospitalization)
  Sender: FDA-Public Use
  Company Number: US-ROCHE-725884

PATIENT
  Age: 64 Year
  Sex: Female

DRUGS (2)
  1. BEVACIZUMAB [Suspect]
     Dosage: FREQUENCY: OVER 30 TO 90 MINUTES ON DAY 1 AND DAY 15.LAST DOSE PRIOR TO SAE: 01 JULY 2010.
     Route: 042
     Dates: start: 20090921
  2. PACLITAXEL [Suspect]
     Dosage: FREQUENCY: OVER 30 MINUTES ON DAYS 1, 8 AND 15, .LAST DOSE PRIOR TO SAE: 01 JULY 2010.
     Route: 065
     Dates: start: 20090921

REACTIONS (5)
  - ACUTE RESPIRATORY DISTRESS SYNDROME [None]
  - CARDIAC ARREST [None]
  - ENCEPHALITIS [None]
  - EYE INFECTION [None]
  - SEPTIC SHOCK [None]
